FAERS Safety Report 5977763-7 (Version None)
Quarter: 2008Q4

REPORT INFORMATION
  Report Type: 
  Country: None (occurrence: None)
  Receive Date: 20081202
  Receipt Date: 20081202
  Transmission Date: 20090506
  Serious: No
  Sender: FDA-Public Use
  Company Number: None

PATIENT
  Sex: Male
  Weight: 145.151 kg

DRUGS (1)
  1. MULTIHANCE GADOBENATE BRACCO DIAGNOSTICS [Suspect]
     Indication: SCAN WITH CONTRAST
     Dosage: 20 ML ONE TIME IV
     Route: 042
     Dates: start: 20081107, end: 20081107

REACTIONS (5)
  - BLOOD PRESSURE IMMEASURABLE [None]
  - DISORIENTATION [None]
  - LOSS OF CONSCIOUSNESS [None]
  - OROPHARYNGEAL PAIN [None]
  - PULSE ABSENT [None]
